FAERS Safety Report 5740954-4 (Version None)
Quarter: 2008Q2

REPORT INFORMATION
  Report Type: 
  Country: None (occurrence: None)
  Receive Date: 20080515
  Receipt Date: 20080125
  Transmission Date: 20081010
  Serious: No
  Sender: FDA-Public Use
  Company Number: WAES 0801USA05236

PATIENT
  Age: 19 Year
  Sex: Male

DRUGS (7)
  1. ISENTRESS [Suspect]
     Indication: ACQUIRED IMMUNODEFICIENCY SYNDROME
     Dosage: 400 MG/BID/PO
     Route: 048
     Dates: start: 20080101
  2. EPZICOM [Concomitant]
  3. MEPRON [Concomitant]
  4. PREZISTA [Concomitant]
  5. VIREAD [Concomitant]
  6. AZITHROMYCIN [Concomitant]
  7. RITONAVIR [Concomitant]

REACTIONS (1)
  - MYALGIA [None]
